FAERS Safety Report 16821030 (Version 1)
Quarter: 2019Q3

REPORT INFORMATION
  Report Type: Spontaneous
  Country: US (occurrence: US)
  Receive Date: 20190918
  Receipt Date: 20190918
  Transmission Date: 20191005
  Serious: Yes (Death, Hospitalization, Other)
  Sender: FDA-Public Use
  Company Number: US-HIKMA PHARMACEUTICALS USA INC.-US-H14001-19-04935

PATIENT
  Age: 24 Year
  Sex: Female

DRUGS (2)
  1. METHAMPHETAMINE [Suspect]
     Active Substance: METHAMPHETAMINE
     Indication: PRODUCT USED FOR UNKNOWN INDICATION
     Route: 065
  2. MARIJUANA [Concomitant]
     Active Substance: CANNABIS SATIVA SUBSP. INDICA TOP
     Indication: PRODUCT USED FOR UNKNOWN INDICATION
     Route: 065

REACTIONS (14)
  - Cardiac ventricular thrombosis [Unknown]
  - Ventricular fibrillation [Fatal]
  - Mitral valve incompetence [Unknown]
  - Cardiogenic shock [Unknown]
  - Acute kidney injury [Unknown]
  - Rhabdomyolysis [Unknown]
  - Mesenteric artery thrombosis [Unknown]
  - Tricuspid valve incompetence [Unknown]
  - Renal infarct [Unknown]
  - Ischaemic hepatitis [Unknown]
  - Drug abuse [Unknown]
  - Acute myocardial infarction [Unknown]
  - Metabolic acidosis [Unknown]
  - Aortic occlusion [Unknown]
